FAERS Safety Report 5634404-6 (Version None)
Quarter: 2008Q1

REPORT INFORMATION
  Report Type: 
  Country: None (occurrence: None)
  Receive Date: 20080222
  Receipt Date: 20080219
  Transmission Date: 20080703
  Serious: Yes (Other)
  Sender: FDA-Public Use
  Company Number: GB-BRISTOL-MYERS SQUIBB COMPANY-14080030

PATIENT
  Age: 19 Year
  Sex: Male

DRUGS (2)
  1. ABILIFY [Suspect]
     Indication: PSYCHOTIC DISORDER
     Route: 048
     Dates: end: 20080205
  2. FLUOXETINE [Concomitant]
     Indication: DEPRESSION
     Route: 048
     Dates: start: 20071201

REACTIONS (10)
  - AGITATION [None]
  - BODY TEMPERATURE INCREASED [None]
  - CONTUSION [None]
  - DRUG INEFFECTIVE [None]
  - HYPERHIDROSIS [None]
  - MUSCLE CONTRACTURE [None]
  - NEUROLEPTIC MALIGNANT SYNDROME [None]
  - OEDEMA PERIPHERAL [None]
  - PAIN IN EXTREMITY [None]
  - RHABDOMYOLYSIS [None]
